FAERS Safety Report 16533874 (Version 2)
Quarter: 2019Q3

REPORT INFORMATION
  Report Type: Spontaneous
  Country: US (occurrence: US)
  Receive Date: 20190705
  Receipt Date: 20190710
  Transmission Date: 20191004
  Serious: Yes (Other)
  Sender: FDA-Public Use
  Company Number: US-ASTRAZENECA-2019SE94251

PATIENT
  Age: 70 Year
  Sex: Female
  Weight: 74.8 kg

DRUGS (5)
  1. TAMOXIFEN [Suspect]
     Active Substance: TAMOXIFEN
     Indication: BREAST CANCER
     Route: 048
     Dates: start: 2004
  2. FASLODEX [Suspect]
     Active Substance: FULVESTRANT
     Indication: BREAST CANCER METASTATIC
     Route: 030
  3. EXEMESTANE. [Suspect]
     Active Substance: EXEMESTANE
     Indication: BREAST CANCER METASTATIC
     Dosage: UNKNOWN DOSE ONCE A DAY BY MOUTH
     Route: 048
     Dates: end: 2019
  4. IBRANCE [Suspect]
     Active Substance: PALBOCICLIB
     Route: 048
     Dates: start: 201903
  5. FASLODEX [Suspect]
     Active Substance: FULVESTRANT
     Indication: BREAST CANCER METASTATIC
     Route: 030

REACTIONS (6)
  - Malignant neoplasm progression [Unknown]
  - Therapy cessation [Not Recovered/Not Resolved]
  - Urinary incontinence [Recovered/Resolved]
  - Drug ineffective [Unknown]
  - Cystitis [Recovered/Resolved]
  - Urinary tract infection [Unknown]

NARRATIVE: CASE EVENT DATE: 2019
